FAERS Safety Report 6888303-2 (Version None)
Quarter: 2010Q3

REPORT INFORMATION
  Report Type: 
  Country: None (occurrence: None)
  Receive Date: 20100730
  Receipt Date: 20100713
  Transmission Date: 20110219
  Serious: Yes (Other)
  Sender: FDA-Public Use
  Company Number: US-PFIZER INC-2010083649

PATIENT
  Sex: Female
  Weight: 65.7 kg

DRUGS (5)
  1. CHANTIX [Suspect]
     Indication: SMOKING CESSATION THERAPY
     Dosage: 0.5 MG, 1X/DAY
     Dates: start: 20100601, end: 20100601
  2. CHANTIX [Suspect]
     Dosage: 1 MG, 2X/DAY
     Route: 048
     Dates: start: 20100601
  3. SUDAFED 12 HOUR [Concomitant]
     Dosage: UNK
  4. FLUTICASONE [Concomitant]
     Dosage: 50 UG, UNK
     Route: 045
  5. LEVOTHYROXINE [Concomitant]
     Dosage: 200 UG, UNK

REACTIONS (3)
  - APHASIA [None]
  - NERVOUSNESS [None]
  - WITHDRAWAL SYNDROME [None]
